FAERS Safety Report 6321693-8 (Version None)
Quarter: 2009Q3

REPORT INFORMATION
  Report Type: 
  Country: None (occurrence: None)
  Receive Date: 20090824
  Receipt Date: 20090821
  Transmission Date: 20100115
  Serious: Yes (Other)
  Sender: FDA-Public Use
  Company Number: FR-JNJFOC-20090805826

PATIENT
  Sex: Male
  Weight: 3.52 kg

DRUGS (2)
  1. INFLIXIMAB [Suspect]
     Indication: DRUG EXPOSURE DURING PREGNANCY
  2. ETANERCEPT [Suspect]
     Indication: DRUG EXPOSURE DURING PREGNANCY

REACTIONS (3)
  - ADRENOGENITAL SYNDROME [None]
  - ESCHERICHIA URINARY TRACT INFECTION [None]
  - JAUNDICE NEONATAL [None]
